FAERS Safety Report 7375622-9 (Version None)
Quarter: 2011Q1

REPORT INFORMATION
  Report Type: 
  Country: None (occurrence: None)
  Receive Date: 20110325
  Receipt Date: 20110322
  Transmission Date: 20110831
  Serious: Yes (Other)
  Sender: FDA-Public Use
  Company Number: US-PFIZER INC-2011063843

PATIENT
  Sex: Male

DRUGS (4)
  1. XANAX [Suspect]
     Indication: ANXIETY
     Dosage: 1 MG, 4X/DAY
     Route: 048
     Dates: start: 19850101
  2. XANAX [Suspect]
     Indication: DEPRESSION
  3. MIRTAZAPINE [Concomitant]
     Indication: DEPRESSION
     Dosage: UNK
  4. CYMBALTA [Concomitant]
     Indication: DEPRESSION
     Dosage: UNK

REACTIONS (2)
  - DRUG DEPENDENCE [None]
  - PANIC ATTACK [None]
